FAERS Safety Report 5720026-5 (Version None)
Quarter: 2008Q2

REPORT INFORMATION
  Report Type: 
  Country: None (occurrence: None)
  Receive Date: 20080424
  Receipt Date: 20080424
  Transmission Date: 20081010
  Serious: Yes (Hospitalization)
  Sender: FDA-Public Use
  Company Number: None

PATIENT
  Age: 61 Year
  Sex: Male
  Weight: 96 kg

DRUGS (1)
  1. LITHIUM CARBONATE [Suspect]
     Dosage: 1 TAB BID PO
     Route: 048
     Dates: start: 20080208, end: 20080321

REACTIONS (2)
  - ATRIOVENTRICULAR BLOCK [None]
  - BRADYCARDIA [None]
